FAERS Safety Report 9890336 (Version 2)
Quarter: 2014Q1

REPORT INFORMATION
  Report Type: Report from Study
  Country: CA (occurrence: CA)
  Receive Date: 20140212
  Receipt Date: 20140217
  Transmission Date: 20141002
  Serious: Yes (Life-Threatening, Hospitalization)
  Sender: FDA-Public Use
  Company Number: CA-ROCHE-1347677

PATIENT
  Sex: Female

DRUGS (13)
  1. OMALIZUMAB [Suspect]
     Indication: ASTHMA
     Route: 058
     Dates: start: 20130529
  2. EPIVAL [Concomitant]
     Route: 065
     Dates: start: 2012
  3. SPIRIVA [Concomitant]
     Route: 065
     Dates: start: 2012
  4. REACTINE (CANADA) [Concomitant]
  5. ACCOLATE [Concomitant]
  6. ADVAIR [Concomitant]
     Route: 065
     Dates: start: 2003
  7. NEXIUM [Concomitant]
     Route: 065
     Dates: start: 2008
  8. EFFEXOR [Concomitant]
     Route: 065
     Dates: start: 2011
  9. TRAZODONE [Concomitant]
     Route: 065
     Dates: start: 2011
  10. ATIVAN [Concomitant]
     Route: 065
     Dates: start: 2012
  11. SYNTHROID [Concomitant]
  12. BUPROPION [Concomitant]
     Route: 065
     Dates: start: 201305
  13. HIZENTRA [Concomitant]
     Dosage: 20 PERCENT
     Route: 065

REACTIONS (4)
  - Cardiac arrest [Recovered/Resolved]
  - Haemorrhage [Recovered/Resolved]
  - Escherichia infection [Recovered/Resolved]
  - Post procedural infection [Recovering/Resolving]
